FAERS Safety Report 6066040-4 (Version None)
Quarter: 2009Q1

REPORT INFORMATION
  Report Type: 
  Country: None (occurrence: None)
  Receive Date: 20090205
  Receipt Date: 20090130
  Transmission Date: 20090719
  Serious: Yes (Other)
  Sender: FDA-Public Use
  Company Number: US-AMGEN-QUU331273

PATIENT
  Sex: Male

DRUGS (8)
  1. ENBREL [Suspect]
     Indication: PSORIASIS
     Dates: start: 20080101, end: 20081101
  2. CARDIZEM [Concomitant]
  3. PRINIVIL [Concomitant]
  4. DOVONEX [Concomitant]
  5. COLCHICINE [Concomitant]
  6. GLUCOPHAGE [Concomitant]
  7. ALLOPURINOL [Concomitant]
  8. AMARYL [Concomitant]

REACTIONS (1)
  - AGEUSIA [None]
